FAERS Safety Report 5379249-X (Version None)
Quarter: 2007Q3

REPORT INFORMATION
  Report Type: 
  Country: None (occurrence: None)
  Receive Date: 20070705
  Receipt Date: 20070627
  Transmission Date: 20080115
  Serious: Yes (Disabling, Other)
  Sender: FDA-Public Use
  Company Number: US-PFIZER INC-2006093373

PATIENT
  Sex: Male
  Weight: 99.8 kg

DRUGS (10)
  1. LYRICA [Suspect]
     Indication: PROCEDURAL PAIN
     Route: 065
     Dates: start: 20060701, end: 20060704
  2. ALL OTHER THERAPEUTIC PRODUCTS [Concomitant]
  3. LEVOTHYROXINE SODIUM [Concomitant]
  4. SPIRONOLACTONE [Concomitant]
  5. CLONIDINE [Concomitant]
  6. LOVASTATIN [Concomitant]
  7. FUROSEMIDE [Concomitant]
  8. PAXIL [Concomitant]
  9. XANAX [Concomitant]
  10. INSULIN [Concomitant]

REACTIONS (32)
  - ABDOMINAL DISTENSION [None]
  - ACTIVITIES OF DAILY LIVING IMPAIRED [None]
  - APNOEA [None]
  - ARTHRITIS [None]
  - BLINDNESS [None]
  - BUNDLE BRANCH BLOCK LEFT [None]
  - BUNDLE BRANCH BLOCK RIGHT [None]
  - COMPLEX REGIONAL PAIN SYNDROME [None]
  - DRUG INEFFECTIVE [None]
  - DRUG SCREEN FALSE POSITIVE [None]
  - EYE HAEMORRHAGE [None]
  - EYE INFECTION [None]
  - FALL [None]
  - FLUID RETENTION [None]
  - GINGIVITIS [None]
  - GLUCOSE TOLERANCE DECREASED [None]
  - LIPOMA [None]
  - NEUROPATHY PERIPHERAL [None]
  - NEUROSIS [None]
  - OPTIC NERVE INJURY [None]
  - ORAL MUCOSAL BLISTERING [None]
  - PERIPHERAL VASCULAR DISORDER [None]
  - PNEUMONIA BACTERIAL [None]
  - PNEUMONIA VIRAL [None]
  - RETINAL DETACHMENT [None]
  - RETINAL VASCULAR DISORDER [None]
  - ROTATOR CUFF SYNDROME [None]
  - SKIN ULCER [None]
  - SUBCUTANEOUS NODULE [None]
  - TOOTH LOSS [None]
  - VISION BLURRED [None]
  - VITREOUS HAEMORRHAGE [None]
